FAERS Safety Report 13564964 (Version 1)
Quarter: 2017Q2

REPORT INFORMATION
  Report Type: Spontaneous
  Country: DE (occurrence: DE)
  Receive Date: 20170519
  Receipt Date: 20170519
  Transmission Date: 20170830
  Serious: Yes (Life-Threatening, Other)
  Sender: FDA-Public Use
  Company Number: DE-BAYER-2017-088548

PATIENT
  Age: 64 Year
  Sex: Female
  Weight: 50 kg

DRUGS (1)
  1. CIPROBAY 250 MG [Suspect]
     Active Substance: CIPROFLOXACIN
     Indication: NECROSIS
     Dosage: 250 MG, BID
     Route: 048
     Dates: start: 20170419

REACTIONS (5)
  - Confusional state [Unknown]
  - Hypotonia [Unknown]
  - Somnolence [Unknown]
  - Muscle twitching [Unknown]
  - Fatigue [Unknown]

NARRATIVE: CASE EVENT DATE: 20170420
